FAERS Safety Report 8059020-0 (Version None)
Quarter: 2012Q1

REPORT INFORMATION
  Report Type: 
  Country: None (occurrence: None)
  Receive Date: 20120120
  Receipt Date: 20110314
  Transmission Date: 20120608
  Serious: No
  Sender: FDA-Public Use
  Company Number: US-BAUSCH-2011BL002331

PATIENT
  Age: 30 Year
  Sex: Male

DRUGS (2)
  1. ALAWAY [Suspect]
     Indication: OFF LABEL USE
     Route: 047
     Dates: start: 20110221, end: 20110312
  2. ALAWAY [Suspect]
     Indication: OCULAR HYPERAEMIA
     Route: 047
     Dates: start: 20110221, end: 20110312

REACTIONS (3)
  - CONDITION AGGRAVATED [None]
  - EYE IRRITATION [None]
  - OCULAR HYPERAEMIA [None]
